FAERS Safety Report 21084033 (Version 1)
Quarter: 2022Q3

REPORT INFORMATION
  Report Type: Spontaneous
  Country: ES (occurrence: ES)
  Receive Date: 20220714
  Receipt Date: 20220714
  Transmission Date: 20221026
  Serious: No
  Sender: FDA-Public Use
  Company Number: ES-JAZZ-2022-ES-014052

PATIENT
  Age: 35 Year
  Sex: Male

DRUGS (1)
  1. EPIDIOLEX [Suspect]
     Active Substance: CANNABIDIOL
     Indication: Product used for unknown indication
     Route: 048

REACTIONS (3)
  - Asthenia [Unknown]
  - Somnolence [Recovering/Resolving]
  - Diarrhoea [Recovering/Resolving]
